FAERS Safety Report 23297014 (Version 1)
Quarter: 2023Q4

REPORT INFORMATION
  Report Type: Spontaneous
  Country: CA (occurrence: None)
  Receive Date: 20231214
  Receipt Date: 20231214
  Transmission Date: 20240110
  Serious: Yes (Other)
  Sender: FDA-Public Use
  Company Number: CA-ROCHE-3473351

PATIENT
  Age: 60 Year
  Sex: Female

DRUGS (1)
  1. RITUXIMAB [Suspect]
     Active Substance: RITUXIMAB
     Indication: Anti-GAD antibody
     Route: 041

REACTIONS (5)
  - Abdominal pain [Unknown]
  - Diarrhoea [Unknown]
  - Musculoskeletal stiffness [Unknown]
  - Off label use [Unknown]
  - Pneumonia [Unknown]
